FAERS Safety Report 15766953 (Version 2)
Quarter: 2019Q1

REPORT INFORMATION
  Report Type: Spontaneous
  Country: US (occurrence: US)
  Receive Date: 20181227
  Receipt Date: 20190121
  Transmission Date: 20190417
  Serious: No
  Sender: FDA-Public Use
  Company Number: US-INCYTE CORPORATION-2018IN013011

PATIENT

DRUGS (1)
  1. JAKAFI [Suspect]
     Active Substance: RUXOLITINIB
     Indication: GRAFT VERSUS HOST DISEASE
     Dosage: 1.25 MG, BID
     Route: 048

REACTIONS (3)
  - Product administered to patient of inappropriate age [Unknown]
  - Wrong technique in product usage process [Unknown]
  - Off label use [Unknown]
